FAERS Safety Report 16244683 (Version 1)
Quarter: 2019Q2

REPORT INFORMATION
  Report Type: Spontaneous
  Country: JP (occurrence: JP)
  Receive Date: 20190426
  Receipt Date: 20190426
  Transmission Date: 20190711
  Serious: Yes (Hospitalization)
  Sender: FDA-Public Use
  Company Number: JP-BAYER-2019-034805

PATIENT
  Age: 67 Year
  Sex: Male
  Weight: 66.5 kg

DRUGS (6)
  1. WHITE PETROLATUM [Concomitant]
     Active Substance: PETROLATUM
     Dosage: UNK
     Dates: start: 20190215, end: 20190218
  2. AMINOLEBAN EN [Concomitant]
     Active Substance: UNSPECIFIED INGREDIENT
     Indication: HYPOALBUMINAEMIA
     Dosage: DAILY DOSE 50 G
     Route: 048
     Dates: start: 20190107
  3. DERMOVATE [Concomitant]
     Active Substance: CLOBETASOL
     Indication: PROPHYLAXIS
     Dosage: UNK
     Dates: start: 20190122, end: 20190215
  4. LIVACT [AMINO ACIDS NOS] [Concomitant]
     Indication: HYPOALBUMINAEMIA
     Dosage: DAILY DOSE 2 DF
     Route: 048
     Dates: start: 20181016
  5. NEXAVAR [Suspect]
     Active Substance: SORAFENIB
     Indication: HEPATOCELLULAR CARCINOMA
     Dosage: DAILY DOSE 800 MG
     Route: 048
     Dates: start: 20190122, end: 20190215
  6. PETROLATUM SALICYLATE [Concomitant]
     Indication: PROPHYLAXIS
     Dosage: UNK
     Dates: start: 20190122, end: 20190215

REACTIONS (2)
  - Pyrexia [Recovered/Resolved]
  - Psoriasis [Recovering/Resolving]

NARRATIVE: CASE EVENT DATE: 20190215
